FAERS Safety Report 4731637-8 (Version None)
Quarter: 2005Q3

REPORT INFORMATION
  Report Type: 
  Country: None (occurrence: None)
  Receive Date: 20050725
  Receipt Date: 20041217
  Transmission Date: 20060218
  Serious: Yes (Life-Threatening)
  Sender: FDA-Public Use
  Company Number: WAES 0412USA02266

PATIENT
  Age: 53 Year
  Sex: Female

DRUGS (1)
  1. VIOXX [Suspect]
     Indication: ARTHRITIS
     Dosage: PO
     Route: 048
     Dates: start: 20010101, end: 20020101

REACTIONS (1)
  - HYPERTENSION [None]
